FAERS Safety Report 24881660 (Version 2)
Quarter: 2025Q1

REPORT INFORMATION
  Report Type: Spontaneous
  Country: JP (occurrence: JP)
  Receive Date: 20250124
  Receipt Date: 20250216
  Transmission Date: 20250409
  Serious: Yes (Hospitalization)
  Sender: ASTELLAS
  Company Number: JP-ASTELLAS-2024JP004955

PATIENT
  Age: 36 Year
  Sex: Female
  Weight: 48 kg

DRUGS (25)
  1. VYLOY [Suspect]
     Active Substance: ZOLBETUXIMAB-CLZB
     Indication: Gastric cancer stage IV
     Route: 042
     Dates: start: 20240712, end: 20240712
  2. VYLOY [Suspect]
     Active Substance: ZOLBETUXIMAB-CLZB
     Route: 042
     Dates: start: 20240806, end: 20240806
  3. VYLOY [Suspect]
     Active Substance: ZOLBETUXIMAB-CLZB
     Route: 042
     Dates: start: 20240827, end: 20240827
  4. VYLOY [Suspect]
     Active Substance: ZOLBETUXIMAB-CLZB
     Route: 042
     Dates: start: 20240910, end: 20240925
  5. VYLOY [Suspect]
     Active Substance: ZOLBETUXIMAB-CLZB
     Route: 042
     Dates: start: 20241016, end: 20241016
  6. VYLOY [Suspect]
     Active Substance: ZOLBETUXIMAB-CLZB
     Route: 042
     Dates: start: 20241030, end: 20250204
  7. Lansoprazole OD Tablets [Concomitant]
     Indication: Gastric cancer stage IV
     Route: 048
     Dates: start: 20240610
  8. LEVOLEUCOVORIN CALCIUM [Concomitant]
     Active Substance: LEVOLEUCOVORIN CALCIUM
     Indication: Gastric cancer stage IV
     Route: 042
     Dates: start: 20240611
  9. LEVOLEUCOVORIN CALCIUM [Concomitant]
     Active Substance: LEVOLEUCOVORIN CALCIUM
     Route: 042
     Dates: start: 20240712, end: 20240712
  10. OXALIPLATIN [Concomitant]
     Active Substance: OXALIPLATIN
     Indication: Gastric cancer stage IV
     Route: 042
     Dates: start: 20240611
  11. OXALIPLATIN [Concomitant]
     Active Substance: OXALIPLATIN
     Route: 042
     Dates: start: 20240712, end: 20240712
  12. FLUOROURACIL [Concomitant]
     Active Substance: FLUOROURACIL
     Indication: Gastric cancer stage IV
     Route: 042
     Dates: start: 20240712, end: 20240714
  13. FLUOROURACIL [Concomitant]
     Active Substance: FLUOROURACIL
     Route: 042
     Dates: start: 20240611
  14. MAGNESIUM OXIDE [Concomitant]
     Active Substance: MAGNESIUM OXIDE
     Indication: Constipation
     Route: 048
     Dates: start: 20240612
  15. SENNOSIDES [Concomitant]
     Active Substance: SENNOSIDES
     Indication: Constipation
     Route: 048
     Dates: start: 20240625
  16. OLANZAPINE [Concomitant]
     Active Substance: OLANZAPINE
     Indication: Gastric cancer stage IV
     Route: 048
     Dates: start: 20240711, end: 20240712
  17. SALINE [Concomitant]
     Active Substance: SODIUM CHLORIDE
     Indication: Gastric cancer stage IV
     Route: 042
     Dates: start: 20240712, end: 20240712
  18. PRIMPERAN [Concomitant]
     Active Substance: METOCLOPRAMIDE HYDROCHLORIDE
     Indication: Nausea
     Route: 042
     Dates: start: 20240712, end: 20240712
  19. PRIMPERAN [Concomitant]
     Active Substance: METOCLOPRAMIDE HYDROCHLORIDE
     Indication: Vomiting
  20. FOSNETUPITANT CHLORIDE HYDROCHLORIDE [Concomitant]
     Active Substance: FOSNETUPITANT CHLORIDE HYDROCHLORIDE
     Indication: Gastric cancer stage IV
     Route: 042
     Dates: start: 20240712, end: 20240712
  21. PALONOSETRON [Concomitant]
     Active Substance: PALONOSETRON
     Indication: Gastric cancer stage IV
     Route: 042
     Dates: start: 20240712, end: 20240712
  22. DECADRON [Concomitant]
     Active Substance: DEXAMETHASONE
     Indication: Gastric cancer stage IV
     Route: 042
     Dates: start: 20240712, end: 20240712
  23. POLARAMINE [Concomitant]
     Active Substance: DEXCHLORPHENIRAMINE MALEATE
     Indication: Gastric cancer stage IV
     Route: 042
     Dates: start: 20240712, end: 20240712
  24. DECADRON [Concomitant]
     Active Substance: DEXAMETHASONE
     Indication: Gastric cancer stage IV
     Route: 048
     Dates: start: 20240713, end: 20240714
  25. AMLODIPINE BESYLATE [Concomitant]
     Active Substance: AMLODIPINE BESYLATE
     Indication: Hypertension
     Route: 048

REACTIONS (4)
  - Decreased appetite [Recovered/Resolved]
  - Hypoalbuminaemia [Recovered/Resolved]
  - Nausea [Recovered/Resolved]
  - Vomiting [Recovered/Resolved]

NARRATIVE: CASE EVENT DATE: 20240712
